FAERS Safety Report 8221046-1 (Version None)
Quarter: 2012Q1

REPORT INFORMATION
  Report Type: 
  Country: None (occurrence: None)
  Receive Date: 20120320
  Receipt Date: 20120314
  Transmission Date: 20120608
  Serious: Yes (Death, Other)
  Sender: FDA-Public Use
  Company Number: US-CELGENEUS-163-21880-12012311

PATIENT
  Sex: Female

DRUGS (13)
  1. REVLIMID [Suspect]
     Dosage: 15 MILLIGRAM
     Route: 048
     Dates: start: 20101001
  2. MEVACOR [Concomitant]
     Route: 065
  3. POTASSIUM CHLORIDE [Concomitant]
     Route: 065
  4. REVLIMID [Suspect]
     Indication: MULTIPLE MYELOMA
     Dosage: 25 MILLIGRAM
     Route: 048
     Dates: start: 20091201
  5. HUMULIN R [Concomitant]
     Route: 065
  6. LEVEMIR [Concomitant]
     Route: 065
  7. IRON [Concomitant]
     Route: 065
  8. MAGNESIUM OXIDE [Concomitant]
     Route: 065
  9. STEROID [Concomitant]
     Route: 065
  10. PRILOSEC [Concomitant]
     Route: 065
  11. NORVASC [Concomitant]
     Route: 065
  12. VALTREX [Concomitant]
     Route: 065
  13. COLACE [Concomitant]
     Route: 065

REACTIONS (2)
  - DEATH [None]
  - DIABETES MELLITUS [None]
